FAERS Safety Report 11070523 (Version 1)
Quarter: 2015Q2

REPORT INFORMATION
  Report Type: Spontaneous
  Country: IR (occurrence: IR)
  Receive Date: 20150427
  Receipt Date: 20150427
  Transmission Date: 20150821
  Serious: Yes (Hospitalization)
  Sender: FDA-Public Use
  Company Number: IR-MYLANLABS-2015M1013960

PATIENT

DRUGS (1)
  1. LIDOCAINE. [Suspect]
     Active Substance: LIDOCAINE
     Dosage: 2 SPOONS (AMOUNT 20-25 CC) LIDOCAINE 2% SOLUTION
     Route: 048
     Dates: start: 201312

REACTIONS (6)
  - Accidental exposure to product by child [Recovering/Resolving]
  - Accidental overdose [Recovering/Resolving]
  - Toxicity to various agents [Recovering/Resolving]
  - Generalised tonic-clonic seizure [Recovered/Resolved]
  - Neurotoxicity [Recovering/Resolving]
  - Cardiotoxicity [Unknown]

NARRATIVE: CASE EVENT DATE: 201312
